FAERS Safety Report 8366625-6 (Version None)
Quarter: 2012Q2

REPORT INFORMATION
  Report Type: 
  Country: None (occurrence: None)
  Receive Date: 20120517
  Receipt Date: 20120511
  Transmission Date: 20120825
  Serious: Yes (Hospitalization)
  Sender: FDA-Public Use
  Company Number: US-CELGENEUS-163-21880-12030343

PATIENT
  Sex: Male

DRUGS (6)
  1. REVLIMID [Suspect]
     Dosage: 10 MILLIGRAM
     Route: 048
     Dates: start: 20120401
  2. COUMADIN [Suspect]
     Dosage: 5 MILLIGRAM
     Route: 065
     Dates: start: 20120101, end: 20120101
  3. REVLIMID [Suspect]
     Indication: MULTIPLE MYELOMA
     Dosage: 10 MILLIGRAM
     Route: 048
     Dates: start: 20120101, end: 20120101
  4. TRANSFUSION [Concomitant]
     Route: 041
  5. TRANSFUSION [Concomitant]
     Route: 065
  6. COUMADIN [Suspect]
     Dosage: DECREASED DOSE
     Route: 065

REACTIONS (4)
  - RASH [None]
  - INCORRECT DOSE ADMINISTERED [None]
  - BLOOD BLISTER [None]
  - DRUG INTERACTION [None]
